FAERS Safety Report 17284976 (Version 1)
Quarter: 2020Q1

REPORT INFORMATION
  Report Type: Spontaneous
  Country: US (occurrence: US)
  Receive Date: 20200117
  Receipt Date: 20200117
  Transmission Date: 20200409
  Serious: No
  Sender: FDA-Public Use
  Company Number: US-BAUSCH-BL-2019-067006

PATIENT
  Age: 78 Year
  Sex: Female

DRUGS (2)
  1. ALAWAY [Suspect]
     Active Substance: KETOTIFEN FUMARATE
     Indication: PRODUCT USE IN UNAPPROVED INDICATION
  2. ALAWAY [Suspect]
     Active Substance: KETOTIFEN FUMARATE
     Indication: OCULAR HYPERAEMIA
     Dosage: USED IN 2 OCCASION
     Route: 047
     Dates: start: 20191229, end: 20191230

REACTIONS (5)
  - Ocular hyperaemia [Recovered/Resolved]
  - Condition aggravated [Recovered/Resolved]
  - Lacrimation increased [Recovered/Resolved]
  - Product use in unapproved indication [Unknown]
  - Eye irritation [Recovered/Resolved]

NARRATIVE: CASE EVENT DATE: 20191229
